FAERS Safety Report 17845996 (Version 4)
Quarter: 2020Q2

REPORT INFORMATION
  Report Type: Report from Study
  Country: RU (occurrence: RU)
  Receive Date: 20200601
  Receipt Date: 20200609
  Transmission Date: 20200714
  Serious: Yes (Hospitalization)
  Sender: FDA-Public Use
  Company Number: RU-EISAI MEDICAL RESEARCH-EC-2020-075311

PATIENT
  Age: 64 Year
  Sex: Male
  Weight: 69.3 kg

DRUGS (13)
  1. SPIRONOLACTONE. [Concomitant]
     Active Substance: SPIRONOLACTONE
     Dates: start: 201804
  2. URSODIOL. [Concomitant]
     Active Substance: URSODIOL
     Dates: start: 201804
  3. PANCREATIN [Concomitant]
     Active Substance: PANCRELIPASE
     Dates: start: 201804
  4. OMEPRAZOLE. [Concomitant]
     Active Substance: OMEPRAZOLE
     Dates: start: 201801
  5. PERINDOPRIL [Concomitant]
     Active Substance: PERINDOPRIL
     Dates: start: 20190426
  6. LENVATINIB [Suspect]
     Active Substance: LENVATINIB
     Indication: HEPATOCELLULAR CARCINOMA
     Dosage: STARTING DOSE AT 12 MG, FLUCTUATED DOSAGE TO 8 MILLIGRAM
     Route: 048
     Dates: start: 20190411, end: 20200513
  7. LENVATINIB [Suspect]
     Active Substance: LENVATINIB
     Route: 048
     Dates: start: 20200514, end: 20200514
  8. PEMBROLIZUMAB. [Suspect]
     Active Substance: PEMBROLIZUMAB
     Route: 041
     Dates: start: 20200514, end: 20200514
  9. TENOXICAM [Suspect]
     Active Substance: TENOXICAM
     Indication: ARTHRALGIA
     Route: 048
     Dates: start: 20200521
  10. CAPTOPRIL. [Concomitant]
     Active Substance: CAPTOPRIL
     Dates: start: 20200403
  11. DIPYRONE [Concomitant]
     Active Substance: DIPYRONE
     Dates: start: 201902
  12. PEMBROLIZUMAB. [Suspect]
     Active Substance: PEMBROLIZUMAB
     Indication: HEPATOCELLULAR CARCINOMA
     Route: 041
     Dates: start: 20190411, end: 20200424
  13. L THYROXIN [Concomitant]
     Active Substance: LEVOTHYROXINE SODIUM
     Dates: start: 20190522

REACTIONS (1)
  - Gastrointestinal haemorrhage [Not Recovered/Not Resolved]

NARRATIVE: CASE EVENT DATE: 20200524
